FAERS Safety Report 8551954-3 (Version None)
Quarter: 2012Q3

REPORT INFORMATION
  Report Type: 
  Country: None (occurrence: None)
  Receive Date: 20120730
  Receipt Date: 20120112
  Transmission Date: 20120928
  Serious: Yes (Other)
  Sender: FDA-Public Use
  Company Number: US-ROCHE-1092409

PATIENT
  Sex: Female

DRUGS (3)
  1. PREDNISONE TAB [Concomitant]
  2. ADVAIR DISKUS 100/50 [Concomitant]
     Dates: end: 20070101
  3. XOLAIR [Suspect]
     Indication: ASTHMA

REACTIONS (2)
  - PREGNANCY [None]
  - BLOOD IMMUNOGLOBULIN E INCREASED [None]
